FAERS Safety Report 15516634 (Version 2)
Quarter: 2018Q4

REPORT INFORMATION
  Report Type: Spontaneous
  Country: JP (occurrence: JP)
  Receive Date: 20181017
  Receipt Date: 20181113
  Transmission Date: 20190205
  Serious: Yes (Other)
  Sender: FDA-Public Use
  Company Number: JP-TEVA-2018-JP-005583J

PATIENT
  Sex: Male

DRUGS (4)
  1. CERCINE [Suspect]
     Active Substance: DIAZEPAM
     Indication: PRODUCT USED FOR UNKNOWN INDICATION
     Route: 048
  2. ALEVIATIN [Concomitant]
     Active Substance: PHENYTOIN SODIUM
     Route: 065
  3. DEPAKENE [Concomitant]
     Active Substance: VALPROIC ACID
     Route: 065
  4. PRIMIDONE. [Concomitant]
     Active Substance: PRIMIDONE
     Route: 065

REACTIONS (7)
  - Muscle contracture [Unknown]
  - Blood pressure increased [Unknown]
  - Diabetes mellitus [Unknown]
  - Epistaxis [Unknown]
  - Palpitations [Unknown]
  - Tension headache [Unknown]
  - Erythema [Unknown]

NARRATIVE: CASE EVENT DATE: 20181010
